FAERS Safety Report 21144715 (Version 1)
Quarter: 2022Q3

REPORT INFORMATION
  Report Type: Spontaneous
  Country: US (occurrence: US)
  Receive Date: 20220728
  Receipt Date: 20220728
  Transmission Date: 20221027
  Serious: Yes (Death, Other)
  Sender: FDA-Public Use
  Company Number: US-009507513-2207USA007393

PATIENT
  Sex: Female
  Weight: 66 kg

DRUGS (5)
  1. TEMODAR [Suspect]
     Active Substance: TEMOZOLOMIDE
     Indication: Glioblastoma
     Dosage: 250 MILLIGRAM, QD
     Route: 048
     Dates: start: 20200707, end: 20200711
  2. TEMODAR [Suspect]
     Active Substance: TEMOZOLOMIDE
     Dosage: 200MG, QD
     Route: 048
     Dates: start: 20200902, end: 20200906
  3. TEMODAR [Suspect]
     Active Substance: TEMOZOLOMIDE
     Dosage: 200MG, QD
     Route: 048
     Dates: start: 20201006, end: 20201006
  4. TEMODAR [Suspect]
     Active Substance: TEMOZOLOMIDE
     Dosage: 250 MILLIGRAM, QD
     Route: 048
     Dates: start: 20201104, end: 20201107
  5. TEMODAR [Suspect]
     Active Substance: TEMOZOLOMIDE
     Dosage: 250 MILLIGRAM
     Route: 048
     Dates: start: 20201203, end: 20201207

REACTIONS (8)
  - Malignant neoplasm progression [Fatal]
  - Nausea [Unknown]
  - Dizziness [Unknown]
  - Visual impairment [Unknown]
  - Fatigue [Unknown]
  - Rash [Recovered/Resolved]
  - Pruritus [Unknown]
  - Drug hypersensitivity [Not Recovered/Not Resolved]

NARRATIVE: CASE EVENT DATE: 20200101
